FAERS Safety Report 6965601-5 (Version None)
Quarter: 2010Q3

REPORT INFORMATION
  Report Type: 
  Country: None (occurrence: None)
  Receive Date: 20100903
  Receipt Date: 20100823
  Transmission Date: 20110219
  Serious: Yes (Hospitalization)
  Sender: FDA-Public Use
  Company Number: FR-ASTRAZENECA-2010SE39713

PATIENT
  Age: 26114 Day
  Sex: Male

DRUGS (6)
  1. KENZEN [Suspect]
     Route: 048
  2. SELOKEN [Suspect]
     Route: 048
  3. FOSINOPRIL HYDROCHLORTHIAZIDE MYLAN [Suspect]
     Dosage: 20 MG / 12.5 MG DAILY
     Route: 048
  4. ESIDRIX [Suspect]
     Route: 048
     Dates: end: 20100701
  5. LERCANIDIPINE MYLAN [Suspect]
     Route: 048
  6. RILMENIDINE MYLAN [Suspect]
     Route: 048

REACTIONS (1)
  - HYPOTENSION [None]
